FAERS Safety Report 9861989 (Version 1)
Quarter: 2014Q1

REPORT INFORMATION
  Report Type: Spontaneous
  Country: US (occurrence: None)
  Receive Date: 20140131
  Receipt Date: 20140131
  Transmission Date: 20141002
  Serious: Yes (Life-Threatening, Hospitalization, Disabling)
  Sender: FDA-Public Use
  Company Number: None

PATIENT
  Age: 48 Year
  Sex: Male
  Weight: 82 kg

DRUGS (1)
  1. VITAMIN K [Suspect]
     Indication: INTERNATIONAL NORMALISED RATIO INCREASED
     Route: 042

REACTIONS (4)
  - Pulseless electrical activity [None]
  - Respiratory arrest [None]
  - Shock haemorrhagic [None]
  - Hypotension [None]
